FAERS Safety Report 22255936 (Version 1)
Quarter: 2023Q2

REPORT INFORMATION
  Report Type: Report from Study
  Country: CO (occurrence: CO)
  Receive Date: 20230426
  Receipt Date: 20230426
  Transmission Date: 20230721
  Serious: Yes (Hospitalization)
  Sender: FDA-Public Use
  Company Number: CO-AstraZeneca-2023A094810

PATIENT
  Age: 129 Day
  Sex: Male
  Weight: 5.3 kg

DRUGS (4)
  1. SYNAGIS [Suspect]
     Active Substance: PALIVIZUMAB
     Indication: Antiviral prophylaxis
     Dosage: MONTHLY
     Route: 030
     Dates: start: 20221031
  2. SYNAGIS [Suspect]
     Active Substance: PALIVIZUMAB
     Dosage: MONTHLY
     Route: 030
     Dates: start: 20230120
  3. SYNAGIS [Suspect]
     Active Substance: PALIVIZUMAB
     Dosage: MONTHLY
     Route: 030
     Dates: start: 20230221
  4. SYNAGIS [Suspect]
     Active Substance: PALIVIZUMAB
     Dosage: MONTHLY
     Route: 030
     Dates: start: 20230323

REACTIONS (2)
  - Influenza [Unknown]
  - Product prescribing issue [Unknown]

NARRATIVE: CASE EVENT DATE: 20221210
